FAERS Safety Report 7480136-1 (Version None)
Quarter: 2011Q2

REPORT INFORMATION
  Report Type: 
  Country: None (occurrence: None)
  Receive Date: 20110516
  Receipt Date: 20110505
  Transmission Date: 20111010
  Serious: No
  Sender: FDA-Public Use
  Company Number: US-BIOGENIDEC-2011BI017202

PATIENT
  Age: 58 Year
  Sex: Female

DRUGS (1)
  1. TYSABRI [Suspect]
     Indication: MULTIPLE SCLEROSIS
     Route: 042
     Dates: start: 20080401

REACTIONS (6)
  - INGROWING NAIL [None]
  - BRONCHITIS [None]
  - FALL [None]
  - TENDONITIS [None]
  - LIMB INJURY [None]
  - FUNGAL INFECTION [None]
